FAERS Safety Report 5980629-X (Version None)
Quarter: 2008Q4

REPORT INFORMATION
  Report Type: 
  Country: None (occurrence: None)
  Receive Date: 20081205
  Receipt Date: 20080220
  Transmission Date: 20090506
  Serious: No
  Sender: FDA-Public Use
  Company Number: A0710694A

PATIENT
  Age: 57 Year
  Sex: Female

DRUGS (1)
  1. COMMIT [Suspect]
     Dates: start: 20080219

REACTIONS (4)
  - OESOPHAGEAL PAIN [None]
  - ORAL DISCOMFORT [None]
  - SENSATION OF FOREIGN BODY [None]
  - THROAT IRRITATION [None]
